FAERS Safety Report 9881926 (Version 3)
Quarter: 2014Q3

REPORT INFORMATION
  Report Type: Report from Study
  Country: IT (occurrence: IT)
  Receive Date: 20140207
  Receipt Date: 20140708
  Transmission Date: 20150326
  Serious: Yes (Hospitalization)
  Sender: FDA-Public Use
  Company Number: IT-VERTEX PHARMACEUTICALS INC-2014-000628

PATIENT
  Age: 64 Year
  Sex: Male
  Weight: 77 kg

DRUGS (16)
  1. Z-RIBAVIRIN [Suspect]
     Active Substance: RIBAVIRIN
     Dosage: 400 MG, BID
     Route: 048
     Dates: start: 20130206, end: 20130404
  2. CARDIAZOL-PARACODINA [Concomitant]
     Indication: COUGH
     Dosage: 10 GTT, QD
     Route: 048
     Dates: start: 20130717, end: 20130903
  3. VX-950 (TELAPREVIR) [Suspect]
     Active Substance: TELAPREVIR
     Indication: HEPATITIS C
     Dosage: 2250 MG, QD
     Route: 048
     Dates: start: 20130108, end: 20130401
  4. ALLOPURINOL. [Concomitant]
     Active Substance: ALLOPURINOL
     Indication: HYPERURICAEMIA
     Dosage: 150 MG, QD
     Dates: start: 20130205
  5. MAGNESIUM [Concomitant]
     Active Substance: MAGNESIUM
     Indication: HYPOMAGNESAEMIA
     Dosage: 2250 MG, TID
  6. Z-RIBAVIRIN [Suspect]
     Active Substance: RIBAVIRIN
     Dosage: 400 MG, BID
     Route: 048
     Dates: start: 20130716, end: 20130819
  7. PEGASYS [Suspect]
     Active Substance: PEGINTERFERON ALFA-2A
     Indication: HEPATITIS C
     Dosage: 180 ?G, QW
     Dates: start: 20130108, end: 20130916
  8. OMEPRAZOLE. [Concomitant]
     Active Substance: OMEPRAZOLE
     Indication: GASTROINTESTINAL DISORDER THERAPY
     Dosage: 20 MG, QD
     Route: 048
     Dates: start: 20130213, end: 20131025
  9. GRANULOKINE [Concomitant]
     Active Substance: FILGRASTIM
     Indication: NEUTROPENIA
     Dosage: ONE DOSE EVERY 15 DAYS
     Route: 058
     Dates: start: 20130601, end: 20130916
  10. Z-RIBAVIRIN [Suspect]
     Active Substance: RIBAVIRIN
     Dosage: 800 MG, BID
     Route: 048
     Dates: start: 20130601, end: 20130625
  11. Z-RIBAVIRIN [Suspect]
     Active Substance: RIBAVIRIN
     Dosage: 600 MG, BID
     Route: 048
     Dates: start: 20130820, end: 20130915
  12. Z-RIBAVIRIN [Suspect]
     Active Substance: RIBAVIRIN
     Dosage: 400 MG, BID
     Route: 048
     Dates: start: 20130626, end: 20130701
  13. Z-RIBAVIRIN [Suspect]
     Active Substance: RIBAVIRIN
     Indication: HEPATITIS C
     Dosage: 600 MG, BID
     Route: 048
     Dates: start: 20130108, end: 20130205
  14. Z-RIBAVIRIN [Suspect]
     Active Substance: RIBAVIRIN
     Dosage: 600 MG, BID
     Route: 048
     Dates: start: 20130702, end: 20130715
  15. Z-RIBAVIRIN [Suspect]
     Active Substance: RIBAVIRIN
     Dosage: 600 MG, BID
     Route: 048
     Dates: start: 20130405, end: 20130531
  16. NEORECORMON [Concomitant]
     Active Substance: ERYTHROPOIETIN
     Indication: ANAEMIA
     Dosage: ONE DOSE EVERY 2 WEEKS
     Route: 058
     Dates: start: 20130220, end: 20130916

REACTIONS (1)
  - Transplant rejection [Recovered/Resolved]

NARRATIVE: CASE EVENT DATE: 20130916
